FAERS Safety Report 16882261 (Version 1)
Quarter: 2019Q4

REPORT INFORMATION
  Report Type: Spontaneous
  Country: US (occurrence: US)
  Receive Date: 20191003
  Receipt Date: 20191003
  Transmission Date: 20200122
  Serious: Yes (Life-Threatening, Hospitalization, Disabling)
  Sender: FDA-Public Use
  Company Number: None

PATIENT
  Age: 65 Year
  Sex: Female
  Weight: 81 kg

DRUGS (3)
  1. ALLOPURINAL [Suspect]
     Active Substance: ALLOPURINOL
     Indication: GOUT
     Dates: start: 20170907, end: 20170925
  2. PROSE EYE DEVISES [Concomitant]
  3. EDARBI [Concomitant]
     Active Substance: AZILSARTAN KAMEDOXOMIL

REACTIONS (1)
  - Stevens-Johnson syndrome [None]

NARRATIVE: CASE EVENT DATE: 20170925
